FAERS Safety Report 11660913 (Version 1)
Quarter: 2015Q4

REPORT INFORMATION
  Report Type: Spontaneous
  Country: US (occurrence: US)
  Receive Date: 20151026
  Receipt Date: 20151026
  Transmission Date: 20160304
  Serious: No
  Sender: FDA-Public Use
  Company Number: US-TAKEDA-2015MPI006905

PATIENT
  Age: 78 Year
  Sex: Male
  Weight: 82.54 kg

DRUGS (4)
  1. ASPIRIN 81 [Concomitant]
     Dosage: 81 MG, UNK
  2. VELCADE [Suspect]
     Active Substance: BORTEZOMIB
     Indication: AMYLOIDOSIS
     Dosage: UNK, Q2WEEKS
     Route: 058
     Dates: start: 2014, end: 20151015
  3. VALACYCLOVIR [Concomitant]
     Active Substance: VALACYCLOVIR HYDROCHLORIDE
     Dosage: UNK
  4. RENVELA [Concomitant]
     Active Substance: SEVELAMER CARBONATE
     Dosage: UNK

REACTIONS (21)
  - Vomiting [Unknown]
  - Chills [Recovered/Resolved]
  - Asthenia [Recovered/Resolved]
  - Thrombocytopenia [Unknown]
  - Off label use [Unknown]
  - Nausea [Unknown]
  - Rash [Unknown]
  - Anaemia [Unknown]
  - Decreased appetite [Unknown]
  - Cough [Recovered/Resolved]
  - Retching [Recovered/Resolved]
  - Body temperature increased [Recovered/Resolved]
  - Pyrexia [Unknown]
  - Neutropenia [Unknown]
  - Neuropathy peripheral [Unknown]
  - Neuralgia [Unknown]
  - Leukopenia [Unknown]
  - Diarrhoea [Unknown]
  - Constipation [Unknown]
  - Lymphopenia [Unknown]
  - Fatigue [Unknown]

NARRATIVE: CASE EVENT DATE: 20151016
